FAERS Safety Report 4506491-X (Version None)
Quarter: 2004Q4

REPORT INFORMATION
  Report Type: 
  Country: None (occurrence: None)
  Receive Date: 20041122
  Receipt Date: 20041019
  Transmission Date: 20050328
  Serious: Yes (Hospitalization)
  Sender: FDA-Public Use
  Company Number: DE-ABBOTT-04P-062-0278150-00

PATIENT
  Sex: Male
  Weight: 90 kg

DRUGS (1)
  1. AKINETON [Suspect]
     Indication: DRUG USE FOR UNKNOWN INDICATION
     Route: 048
     Dates: start: 20041014, end: 20041014

REACTIONS (8)
  - ACCIDENTAL OVERDOSE [None]
  - BLOOD CREATINE PHOSPHOKINASE INCREASED [None]
  - HALLUCINATION [None]
  - HYPERTENSION [None]
  - MYDRIASIS [None]
  - OVERDOSE [None]
  - RESTLESSNESS [None]
  - TACHYCARDIA [None]
